FAERS Safety Report 13995260 (Version 1)
Quarter: 2017Q3

REPORT INFORMATION
  Report Type: Spontaneous
  Country: US (occurrence: US)
  Receive Date: 20170921
  Receipt Date: 20170921
  Transmission Date: 20171128
  Serious: Yes (Other)
  Sender: FDA-Public Use
  Company Number: None

PATIENT
  Age: 41 Year
  Sex: Female
  Weight: 56.7 kg

DRUGS (1)
  1. SCOPOLAMINE [Suspect]
     Active Substance: SCOPOLAMINE
     Indication: PROPHYLAXIS AGAINST MOTION SICKNESS
     Dosage: OTHER FREQUENCY:Q 3 DAYS;?
     Route: 062
     Dates: start: 20170914, end: 20170918

REACTIONS (9)
  - Epistaxis [None]
  - Dry mouth [None]
  - Vomiting [None]
  - Product substitution issue [None]
  - Nausea [None]
  - Visual impairment [None]
  - Speech disorder [None]
  - Dysuria [None]
  - Pharyngitis [None]

NARRATIVE: CASE EVENT DATE: 20170914
